FAERS Safety Report 6981099 (Version 2)
Quarter: 2014Q1

REPORT INFORMATION
  Report Type: Spontaneous
  Country: US (occurrence: None)
  Receive Date: 20090422
  Receipt Date: 20140219
  Transmission Date: 20141002
  Serious: Yes (Other)
  Sender: FDA-Public Use
  Company Number: 2009S1003231

PATIENT
  Age: 64 Year
  Sex: Male

DRUGS (12)
  1. FLEET PHOSPHO-SODA [Suspect]
     Indication: COLONOSCOPY
     Dosage: 90ML, 24HOURS, ORAL
     Route: 048
     Dates: start: 20060518, end: 20060518
  2. ALBUTEROL (SALBUTAMOL) [Concomitant]
  3. BENAZEPRIL HCL (BENAZEPRIL HYDROCHLORIDE) [Concomitant]
  4. FLUNISOLIDE (FLUNISOLIDE)(25 MICROGRAM, NASAL SPRAY) [Concomitant]
  5. FLUOCINONIDE [Suspect]
  6. HYDROCHLOROTHIAZIDE (HYDROCHLOROTHIAZIDE) [Concomitant]
  7. IBUPROFEN (IBUPROFEN) [Concomitant]
  8. IPRATROPIUM (IPRATROPIUM BROMIDE) [Concomitant]
  9. KETOCONAZOLE (KETOCONAZOLE) [Concomitant]
  10. METRONIDAZOLE (METRONIDAZOLE) [Concomitant]
  11. SODIUM CHLORIDE (SODIUM CHLORIDE) [Concomitant]
  12. TRETINOIN (TRETINOIN) [Concomitant]

REACTIONS (1)
  - Renal failure [None]
